FAERS Safety Report 6217286-3 (Version None)
Quarter: 2009Q2

REPORT INFORMATION
  Report Type: 
  Country: None (occurrence: None)
  Receive Date: 20090608
  Receipt Date: 20090602
  Transmission Date: 20091009
  Serious: Yes (Hospitalization)
  Sender: FDA-Public Use
  Company Number: FR-BRISTOL-MYERS SQUIBB COMPANY-14648612

PATIENT
  Age: 85 Year
  Sex: Male

DRUGS (6)
  1. APROVEL TABS 150 MG [Suspect]
     Route: 048
  2. CARYOLYSINE [Suspect]
     Indication: MYCOSIS FUNGOIDES
     Route: 061
     Dates: start: 19850101, end: 19940101
  3. RILMENIDINE [Suspect]
     Route: 048
  4. TEMERIT [Suspect]
     Route: 048
  5. LERCAN [Suspect]
     Route: 048
  6. BUMEX [Suspect]
     Route: 048

REACTIONS (1)
  - HODGKIN'S DISEASE [None]
